FAERS Safety Report 11096685 (Version 7)
Quarter: 2015Q3

REPORT INFORMATION
  Report Type: Spontaneous
  Country: US (occurrence: US)
  Receive Date: 20150507
  Receipt Date: 20150908
  Transmission Date: 20151125
  Serious: Yes (Hospitalization, Other)
  Sender: FDA-Public Use
  Company Number: US-PFIZER INC-2015148704

PATIENT
  Age: 79 Year
  Sex: Female
  Weight: 63 kg

DRUGS (7)
  1. RELPAX [Suspect]
     Active Substance: ELETRIPTAN HYDROBROMIDE
     Dosage: 40 MG, UNK
  2. RELPAX [Suspect]
     Active Substance: ELETRIPTAN HYDROBROMIDE
     Dosage: UNK
  3. CRESTOR [Concomitant]
     Active Substance: ROSUVASTATIN CALCIUM
     Indication: BLOOD CHOLESTEROL ABNORMAL
     Dosage: 40 MG, UNK
  4. RELPAX [Suspect]
     Active Substance: ELETRIPTAN HYDROBROMIDE
     Indication: MIGRAINE
     Dosage: 30MG ONCE DAILY WHEN NEEDED
  5. RELPAX [Suspect]
     Active Substance: ELETRIPTAN HYDROBROMIDE
     Dosage: 20 MG ONCE A DAY ONLY WHEN NECESSARY
  6. RELPAX [Suspect]
     Active Substance: ELETRIPTAN HYDROBROMIDE
     Dosage: TAKING HALF TABLET INSTEAD OF FULL DOSAGES OF 40 MG
  7. L-THYROXINE [Concomitant]
     Active Substance: LEVOTHYROXINE
     Indication: THYROID DISORDER
     Dosage: 10 MG, UNK

REACTIONS (10)
  - Decreased appetite [Recovered/Resolved]
  - Malaise [Recovered/Resolved]
  - Emotional disorder [Unknown]
  - Dehydration [Recovered/Resolved]
  - Stress [Unknown]
  - Nausea [Recovered/Resolved]
  - Sleep disorder [Unknown]
  - Headache [Recovered/Resolved]
  - Blindness transient [Not Recovered/Not Resolved]
  - Feeling abnormal [Unknown]
